FAERS Safety Report 9677213 (Version 1)
Quarter: 2013Q4

REPORT INFORMATION
  Report Type: Spontaneous
  Country: US (occurrence: None)
  Receive Date: 20131107
  Receipt Date: 20131107
  Transmission Date: 20140711
  Serious: Yes (Other)
  Sender: FDA-Public Use
  Company Number: None

PATIENT
  Age: 47 Year
  Sex: Female
  Weight: 77.11 kg

DRUGS (1)
  1. MIRAPEX [Suspect]
     Indication: RESTLESS LEGS SYNDROME
     Dosage: 1 OR 2 PILLS, AT BEDTIME
     Route: 048

REACTIONS (5)
  - Pathological gambling [None]
  - Compulsions [None]
  - Disturbance in attention [None]
  - Impaired work ability [None]
  - Economic problem [None]
